FAERS Safety Report 5777727-2 (Version None)
Quarter: 2008Q2

REPORT INFORMATION
  Report Type: 
  Country: None (occurrence: None)
  Receive Date: 20080618
  Receipt Date: 20080616
  Transmission Date: 20081010
  Serious: Yes (Hospitalization, Disabling)
  Sender: FDA-Public Use
  Company Number: NL-BOEHRINGER INGELHEIM GMBH, GERMANY-2008-DE-03525GD

PATIENT
  Age: 9 Year
  Sex: Male
  Weight: 36 kg

DRUGS (9)
  1. CLONIDINE [Suspect]
     Route: 042
  2. BUPIVACAINE [Suspect]
     Indication: EPIDURAL ANAESTHESIA
     Dosage: BUPIVACAINE 0.25%; 3 ML TEST DOSE, 12 ML BOLUS DOSE
     Route: 008
  3. BUPIVACAINE [Suspect]
     Dosage: CONTINUOUS INFUSION OF BUPIVACAINE 0.125%
     Route: 008
  4. ADRENALINE [Suspect]
     Indication: EPIDURAL ANAESTHESIA
     Dosage: 15 ML, 1:200000
     Route: 008
  5. FENTANYL [Suspect]
     Indication: EPIDURAL ANAESTHESIA
     Dosage: CONTINUOUS INFUSION OF 2.5 MCG/ML
     Route: 008
  6. VINCRISTINE [Suspect]
     Indication: EWING'S SARCOMA
  7. IFOSFAMIDE [Suspect]
     Indication: EWING'S SARCOMA
  8. DOXORUBICIN HCL [Suspect]
     Indication: EWING'S SARCOMA
  9. ETOPOSIDE [Suspect]
     Indication: EWING'S SARCOMA

REACTIONS (4)
  - DYSPNOEA [None]
  - OPERATIVE HAEMORRHAGE [None]
  - PARAPLEGIA [None]
  - THORACIC HAEMORRHAGE [None]
